FAERS Safety Report 17212400 (Version 1)
Quarter: 2019Q4

REPORT INFORMATION
  Report Type: Report from Study
  Country: CA (occurrence: CA)
  Receive Date: 20191230
  Receipt Date: 20191230
  Transmission Date: 20200122
  Serious: Yes (Death, Hospitalization)
  Sender: FDA-Public Use
  Company Number: CA-TEVA-2019-CA-1158868

PATIENT
  Age: 77 Year
  Sex: Female

DRUGS (2)
  1. SANDOSTATIN [Suspect]
     Active Substance: OCTREOTIDE ACETATE
     Indication: CARCINOID TUMOUR OF THE GASTROINTESTINAL TRACT
     Route: 030
  2. OCTREOTIDE ACETATE. [Suspect]
     Active Substance: OCTREOTIDE ACETATE
     Indication: PRODUCT USED FOR UNKNOWN INDICATION
     Dosage: 200 MICROGRAM DAILY;
     Route: 058

REACTIONS (1)
  - Death [Fatal]
